FAERS Safety Report 8314392-4 (Version None)
Quarter: 2012Q2

REPORT INFORMATION
  Report Type: 
  Country: None (occurrence: None)
  Receive Date: 20120426
  Receipt Date: 20120413
  Transmission Date: 20120825
  Serious: Yes (Other)
  Sender: FDA-Public Use
  Company Number: US-ROCHE-1060031

PATIENT
  Sex: Female

DRUGS (7)
  1. OMALIZUMAB [Suspect]
     Indication: ASTHMA
     Route: 058
     Dates: start: 20120306, end: 20120307
  2. SINGULAIR [Concomitant]
     Indication: ASTHMA
     Route: 048
  3. PROAIR HFA [Concomitant]
  4. ZYRTEC [Concomitant]
  5. PREDNISONE TAB [Concomitant]
  6. ADVAIR DISKUS 100/50 [Concomitant]
     Indication: ASTHMA
     Route: 055
  7. BENADRYL [Concomitant]

REACTIONS (7)
  - GASTRIC DISORDER [None]
  - ORAL PRURITUS [None]
  - BLOOD PRESSURE INCREASED [None]
  - THROAT IRRITATION [None]
  - BLOOD GLUCOSE INCREASED [None]
  - FATIGUE [None]
  - NAUSEA [None]
